FAERS Safety Report 16785835 (Version 8)
Quarter: 2019Q4

REPORT INFORMATION
  Report Type: Spontaneous
  Country: US (occurrence: US)
  Receive Date: 20190909
  Receipt Date: 20191120
  Transmission Date: 20200122
  Serious: No
  Sender: FDA-Public Use
  Company Number: US-PFIZER INC-2019387736

PATIENT
  Age: 52 Year
  Sex: Female
  Weight: 67 kg

DRUGS (14)
  1. PREVACID [Concomitant]
     Active Substance: LANSOPRAZOLE
     Dosage: 60 MG, 1X/DAY
     Route: 048
  2. TYSABRI [Concomitant]
     Active Substance: NATALIZUMAB
     Dosage: UNK 300MG/ 15 ML IV INFUSION EVERY 36 DAYS)
     Route: 042
     Dates: start: 2011
  3. SOLU-MEDROL [Concomitant]
     Active Substance: METHYLPREDNISOLONE SODIUM SUCCINATE
     Indication: MULTIPLE SCLEROSIS
     Dosage: 1000 MG, 1X/DAY(INFUSE OVER 1.5 - 2 HOURS AS TOLERATED DIAGNOSIS: G35)
     Route: 042
  4. PREGABALIN. [Suspect]
     Active Substance: PREGABALIN
     Indication: MULTIPLE SCLEROSIS
     Dosage: 150 MG, 1X/DAY
     Route: 048
     Dates: start: 20190822, end: 20190823
  5. LYRICA CR [Concomitant]
     Active Substance: PREGABALIN
     Dosage: 165 MG, DAILY (AFTER EVENING MEAL)
     Route: 048
  6. LYRICA [Concomitant]
     Active Substance: PREGABALIN
     Dosage: 75 MG, 2X/DAY
     Route: 048
     Dates: start: 20150720
  7. VITAMIN D3 [Concomitant]
     Active Substance: CHOLECALCIFEROL
     Dosage: 5000 IU, 1X/DAY
     Route: 048
  8. IBUPROFEN. [Concomitant]
     Active Substance: IBUPROFEN
     Dosage: 800 MG, AS NEEDED 1 PO (ORAL) BID (TWICE A DAY)
     Route: 048
  9. PREGABALIN. [Suspect]
     Active Substance: PREGABALIN
     Dosage: 75 MG, 2X/DAY
     Route: 048
     Dates: start: 20150720
  10. BACLOFEN. [Concomitant]
     Active Substance: BACLOFEN
     Dosage: 20 MG, 1X/DAY (QHS-EVERY NIGHT AT BEDTIME)
     Route: 048
     Dates: start: 2016
  11. CALCIUM+MAGNESIUM [Concomitant]
     Dosage: UNK, 1X/DAY (500-250 MG/ 1 PO HS (BEFORE MEAL))
     Route: 048
  12. PREGABALIN. [Suspect]
     Active Substance: PREGABALIN
     Dosage: 300 MG, 1X/DAY (150 MG, TWO AT NIGHT T)
  13. ALLEGRA [Concomitant]
     Active Substance: FEXOFENADINE HYDROCHLORIDE
     Dosage: 180 MG, DAILY
     Route: 048
  14. GABA [GAMMA-AMINOBUTYRIC ACID] [Concomitant]
     Dosage: 750 MG, 1X/DAY (HS (BEFORE MEAL))
     Route: 048

REACTIONS (27)
  - Off label use [Unknown]
  - Feeling abnormal [Recovered/Resolved]
  - Nausea [Unknown]
  - Pain [Recovering/Resolving]
  - Muscular weakness [Recovering/Resolving]
  - Disturbance in attention [Recovering/Resolving]
  - Headache [Recovering/Resolving]
  - Hypoaesthesia [Recovering/Resolving]
  - Balance disorder [Recovering/Resolving]
  - Dysarthria [Recovering/Resolving]
  - Temperature intolerance [Recovering/Resolving]
  - Dysphagia [Recovering/Resolving]
  - Impaired driving ability [Recovered/Resolved]
  - Fatigue [Recovering/Resolving]
  - Depression [Unknown]
  - Sexual dysfunction [Unknown]
  - Dizziness [Recovered/Resolved]
  - Malaise [Unknown]
  - Product use in unapproved indication [Unknown]
  - Anxiety [Recovering/Resolving]
  - Dry eye [Unknown]
  - Dry mouth [Unknown]
  - Vertigo [Unknown]
  - Muscle spasms [Recovering/Resolving]
  - Gait disturbance [Unknown]
  - Pain in extremity [Unknown]
  - Dysphonia [Unknown]

NARRATIVE: CASE EVENT DATE: 2018
